FAERS Safety Report 8103361-5 (Version None)
Quarter: 2011Q4

REPORT INFORMATION
  Report Type: 
  Country: None (occurrence: None)
  Receive Date: 20111222
  Receipt Date: 20111017
  Transmission Date: 20120403
  Serious: Yes (Hospitalization)
  Sender: FDA-Public Use
  Company Number: UTC-011367

PATIENT
  Age: 40 Year
  Sex: Female
  Weight: 90.45 kg

DRUGS (4)
  1. REVATIO (SILDENAFIL CITRATE) (UNKNOWN) [Concomitant]
  2. TRACLEER (BOSENTAN) (UNKNOWN) [Concomitant]
  3. TYVASO [Suspect]
     Indication: PULMONARY ARTERIAL HYPERTENSION
     Dosage: 18 - 54 MICROGRAMS  (4 IN 1 D), INHALATION
     Route: 055
     Dates: start: 20091013
  4. COUMADIN [Concomitant]

REACTIONS (1)
  - DIVERTICULUM [None]
